FAERS Safety Report 13965257 (Version 1)
Quarter: 2017Q3

REPORT INFORMATION
  Report Type: Spontaneous
  Country: US (occurrence: US)
  Receive Date: 20170913
  Receipt Date: 20170913
  Transmission Date: 20171128
  Serious: No
  Sender: FDA-Public Use
  Company Number: US-VIVUS, INC.-2016V1000312

PATIENT
  Age: 41 Year
  Sex: Female
  Weight: 65.83 kg

DRUGS (6)
  1. SULFASALAZINE. [Concomitant]
     Active Substance: SULFASALAZINE
     Indication: RHEUMATOID ARTHRITIS
     Route: 048
  2. QSYMIA [Suspect]
     Active Substance: PHENTERMINE HYDROCHLORIDE\TOPIRAMATE
     Indication: WEIGHT DECREASED
     Route: 048
     Dates: start: 201607, end: 20160904
  3. OMEPRAZOLE. [Concomitant]
     Active Substance: OMEPRAZOLE
     Indication: DYSPEPSIA
     Route: 048
  4. QSYMIA [Suspect]
     Active Substance: PHENTERMINE HYDROCHLORIDE\TOPIRAMATE
     Indication: WEIGHT DECREASED
     Route: 048
     Dates: start: 201604, end: 2016
  5. CIMZIA [Concomitant]
     Active Substance: CERTOLIZUMAB PEGOL
     Indication: RHEUMATOID ARTHRITIS
  6. ZOCOR [Concomitant]
     Active Substance: SIMVASTATIN
     Indication: BLOOD CHOLESTEROL
     Route: 048

REACTIONS (6)
  - Asthenia [Not Recovered/Not Resolved]
  - Nightmare [Not Recovered/Not Resolved]
  - Dysgeusia [Not Recovered/Not Resolved]
  - Drug dose titration not performed [Not Recovered/Not Resolved]
  - Sluggishness [Not Recovered/Not Resolved]
  - Fatigue [Not Recovered/Not Resolved]

NARRATIVE: CASE EVENT DATE: 2016
